FAERS Safety Report 24571053 (Version 4)
Quarter: 2024Q4

REPORT INFORMATION
  Report Type: Spontaneous
  Country: BR (occurrence: BR)
  Receive Date: 20241101
  Receipt Date: 20241212
  Transmission Date: 20250114
  Serious: Yes (Death, Other)
  Sender: ASTELLAS
  Company Number: BR-ASTELLAS-2024-AER-015094

PATIENT
  Age: 74 Year
  Sex: Female

DRUGS (3)
  1. XOSPATA [Suspect]
     Active Substance: GILTERITINIB
     Indication: Acute myeloid leukaemia
     Dosage: 3 TABLETS OF 40MG PER DAY
     Route: 048
     Dates: start: 20241018, end: 20241123
  2. VENETOCLAX [Concomitant]
     Active Substance: VENETOCLAX
     Indication: Acute myeloid leukaemia
     Route: 065
  3. AZACITIDINE [Concomitant]
     Active Substance: AZACITIDINE
     Indication: Acute myeloid leukaemia
     Route: 065

REACTIONS (3)
  - Erythema multiforme [Recovering/Resolving]
  - Condition aggravated [Recovering/Resolving]
  - Infection [Fatal]

NARRATIVE: CASE EVENT DATE: 20241021
